FAERS Safety Report 11367908 (Version 1)
Quarter: 2015Q3

REPORT INFORMATION
  Report Type: Spontaneous
  Country: US (occurrence: None)
  Receive Date: 20150810
  Receipt Date: 20150810
  Transmission Date: 20151125
  Serious: Yes (Other)
  Sender: FDA-Public Use
  Company Number: None

PATIENT
  Age: 86 Year
  Sex: Female
  Weight: 39.1 kg

DRUGS (12)
  1. ACETAMINOPHEN-HYDROCODOEN SOLUTION [Concomitant]
  2. ONDANSETRON [Concomitant]
     Active Substance: ONDANSETRON
  3. ALBUTEROL. [Concomitant]
     Active Substance: ALBUTEROL
  4. BISACODYL. [Concomitant]
     Active Substance: BISACODYL
  5. DIPHENHYDRAMINE. [Concomitant]
     Active Substance: DIPHENHYDRAMINE
  6. DRONEDARONE [Concomitant]
     Active Substance: DRONEDARONE
  7. METOPROLOL [Concomitant]
     Active Substance: METOPROLOL
  8. PANTOPROAZOLE [Concomitant]
  9. SUPPOSITORY [Concomitant]
  10. RITUXIMAB [Suspect]
     Active Substance: RITUXIMAB
     Indication: NON-HODGKIN^S LYMPHOMA
     Route: 042
     Dates: start: 20150804, end: 20150804
  11. DEXAMETHASONE. [Concomitant]
     Active Substance: DEXAMETHASONE
  12. ACETAMINOPHEN. [Concomitant]
     Active Substance: ACETAMINOPHEN

REACTIONS (2)
  - Atrial fibrillation [None]
  - Pruritus [None]

NARRATIVE: CASE EVENT DATE: 20150804
